FAERS Safety Report 8332135-5 (Version None)
Quarter: 2012Q2

REPORT INFORMATION
  Report Type: 
  Country: None (occurrence: None)
  Receive Date: 20120502
  Receipt Date: 20120430
  Transmission Date: 20120825
  Serious: Yes (Other)
  Sender: FDA-Public Use
  Company Number: US-AMGEN-USASP2012027298

PATIENT
  Sex: Female

DRUGS (4)
  1. LUNESTA [Concomitant]
     Indication: INSOMNIA
  2. PROLIA [Suspect]
     Indication: OSTEOPOROSIS POSTMENOPAUSAL
     Dosage: 60 MG, Q6MO
     Dates: start: 20111201
  3. KEPPRA [Concomitant]
     Dosage: 500 MG, BID
     Dates: start: 20120409
  4. CALCIUM [Concomitant]

REACTIONS (12)
  - ELECTROENCEPHALOGRAM ABNORMAL [None]
  - DYSARTHRIA [None]
  - NERVOUSNESS [None]
  - PLATELET COUNT DECREASED [None]
  - APHASIA [None]
  - TREMOR [None]
  - BACK PAIN [None]
  - MALAISE [None]
  - PAIN IN EXTREMITY [None]
  - HAEMATOCRIT DECREASED [None]
  - ASTHENIA [None]
  - HAEMOGLOBIN DECREASED [None]
